FAERS Safety Report 23723776 (Version 1)
Quarter: 2024Q2

REPORT INFORMATION
  Report Type: Spontaneous
  Country: US (occurrence: None)
  Receive Date: 20240404
  Receipt Date: 20240404
  Transmission Date: 20240716
  Serious: Yes (Life-Threatening, Other)
  Sender: FDA-Public Use
  Company Number: None

PATIENT
  Age: 86 Year
  Sex: Female
  Weight: 54.43 kg

DRUGS (7)
  1. ACIPHEX [Suspect]
     Active Substance: RABEPRAZOLE SODIUM
     Indication: Gastrooesophageal reflux disease
     Dosage: 20  MG?NPO 1 DAY
     Dates: end: 20240228
  2. QVAR [Concomitant]
     Active Substance: BECLOMETHASONE DIPROPIONATE
  3. ASMANEX [Concomitant]
     Active Substance: MOMETASONE FUROATE
  4. VITAMIN D NOS [Concomitant]
     Active Substance: VITAMIN D NOS
  5. Vit B-12 [Concomitant]
  6. Mag-Potassium [Concomitant]
  7. VITAMINS [Concomitant]
     Active Substance: VITAMINS

REACTIONS (13)
  - Frequent bowel movements [None]
  - Abdominal discomfort [None]
  - Syncope [None]
  - Dizziness [None]
  - Loss of consciousness [None]
  - Rash [None]
  - Muscular weakness [None]
  - Paraesthesia [None]
  - Vitamin B12 decreased [None]
  - Dyspnoea [None]
  - Muscle spasms [None]
  - Anxiety [None]
  - Blood pressure systolic increased [None]

NARRATIVE: CASE EVENT DATE: 20240228
